FAERS Safety Report 12893513 (Version 1)
Quarter: 2016Q4

REPORT INFORMATION
  Report Type: Spontaneous
  Country: US (occurrence: US)
  Receive Date: 20161027
  Receipt Date: 20161027
  Transmission Date: 20170207
  Serious: Yes (Life-Threatening, Hospitalization, Disabling)
  Sender: FDA-Public Use
  Company Number: None

PATIENT
  Age: 76 Year
  Sex: Male
  Weight: 54 kg

DRUGS (2)
  1. INSULIN [Concomitant]
     Active Substance: INSULIN NOS
  2. FENOFIBRATE TABLES [Suspect]
     Active Substance: FENOFIBRATE
     Indication: HIGH DENSITY LIPOPROTEIN DECREASED
     Dates: start: 20100101, end: 20110301

REACTIONS (3)
  - Chromaturia [None]
  - Pancreatic carcinoma [None]
  - Faeces discoloured [None]

NARRATIVE: CASE EVENT DATE: 20110301
